FAERS Safety Report 15148969 (Version 2)
Quarter: 2018Q4

REPORT INFORMATION
  Report Type: Spontaneous
  Country: BR (occurrence: BR)
  Receive Date: 20180716
  Receipt Date: 20181023
  Transmission Date: 20190204
  Serious: No
  Sender: FDA-Public Use
  Company Number: BR-GLAXOSMITHKLINE-BR2018GSK124525

PATIENT
  Sex: Female
  Weight: 80 kg

DRUGS (6)
  1. RELVAR ELLIPTA [Suspect]
     Active Substance: FLUTICASONE FUROATE\VILANTEROL TRIFENATATE
     Indication: BREAST DISCHARGE
  2. RELVAR ELLIPTA [Suspect]
     Active Substance: FLUTICASONE FUROATE\VILANTEROL TRIFENATATE
     Indication: BRONCHOSPASM
     Dosage: UNK UNK, Z
     Route: 048
  3. SOMALGIN (BUFFERED ACETYLSALICYLIC ACID) [Concomitant]
     Indication: CARDIAC DISORDER
     Dosage: UNK
  4. ATENOLOL. [Concomitant]
     Active Substance: ATENOLOL
     Indication: BLOOD PRESSURE ABNORMAL
     Dosage: UNK
  5. DOMPERIDONA [Concomitant]
     Indication: PRODUCT USED FOR UNKNOWN INDICATION
     Dosage: UNK
  6. BROMAZEPAM [Concomitant]
     Active Substance: BROMAZEPAM
     Indication: PRODUCT USED FOR UNKNOWN INDICATION
     Dosage: UNK

REACTIONS (4)
  - Product use issue [Not Recovered/Not Resolved]
  - Product use in unapproved indication [Unknown]
  - Choking sensation [Unknown]
  - Product complaint [Unknown]
